FAERS Safety Report 4289395-X (Version None)
Quarter: 2004Q1

REPORT INFORMATION
  Report Type: 
  Country: None (occurrence: None)
  Receive Date: 20040206
  Receipt Date: 20040127
  Transmission Date: 20041129
  Serious: Yes (Hospitalization)
  Sender: FDA-Public Use
  Company Number: 2004CG00192

PATIENT
  Age: 89 Year
  Sex: Male
  Weight: 61 kg

DRUGS (4)
  1. CASODEX [Suspect]
     Indication: PROSTATE CANCER
     Dosage: 50 MG DAILY PO
     Route: 048
  2. BEDELIX [Suspect]
     Dosage: 1 DF BID PO
     Route: 048
  3. DEROXAT [Suspect]
     Indication: DEPRESSION
     Dosage: 20 MG DAILY PO
     Route: 048
  4. TARDYFERON [Suspect]
     Dosage: 80 MG DAILY PO
     Route: 048

REACTIONS (9)
  - ACTIVITIES OF DAILY LIVING IMPAIRED [None]
  - DIFFICULTY IN WALKING [None]
  - DISORIENTATION [None]
  - FALL [None]
  - HEAD INJURY [None]
  - HEMIPARESIS [None]
  - LOSS OF CONSCIOUSNESS [None]
  - SUBDURAL HAEMATOMA [None]
  - URINARY INCONTINENCE [None]
